FAERS Safety Report 8110910-X (Version None)
Quarter: 2012Q1

REPORT INFORMATION
  Report Type: 
  Country: None (occurrence: None)
  Receive Date: 20120203
  Receipt Date: 20120124
  Transmission Date: 20120608
  Serious: Yes (Death, Other)
  Sender: FDA-Public Use
  Company Number: US-AMGEN-USASP2011063988

PATIENT
  Age: 79 Year
  Sex: Male
  Weight: 67 kg

DRUGS (6)
  1. EPOGEN [Suspect]
     Indication: NEPHROGENIC ANAEMIA
     Dosage: 1000 IU, 3 TIMES/WK
     Route: 042
     Dates: start: 20110531
  2. CLONIDINE [Concomitant]
  3. EPOGEN [Suspect]
  4. HECTOROL [Concomitant]
  5. PHENERGAN [Concomitant]
  6. HEPARIN [Concomitant]

REACTIONS (1)
  - LUNG NEOPLASM MALIGNANT [None]
